FAERS Safety Report 9107313 (Version 6)
Quarter: 2014Q1

REPORT INFORMATION
  Report Type: Spontaneous
  Country: US (occurrence: US)
  Receive Date: 20130221
  Receipt Date: 20140130
  Transmission Date: 20141002
  Serious: Yes (Hospitalization, Other)
  Sender: FDA-Public Use
  Company Number: US-009507513-1302USA009120

PATIENT
  Sex: Female
  Weight: 77.98 kg

DRUGS (13)
  1. FOSAMAX [Suspect]
     Indication: OSTEOPOROSIS
     Dosage: 70 MG, QW
     Route: 048
     Dates: start: 2001, end: 200709
  2. FOSAMAX [Suspect]
     Indication: OSTEOPENIA
  3. BONIVA [Concomitant]
     Indication: OSTEOPOROSIS
     Dosage: 150 MG, QM
     Route: 048
     Dates: start: 200709, end: 201002
  4. VITAMINS (UNSPECIFIED) [Concomitant]
     Dosage: UNK DF, QD
  5. TUMS [Concomitant]
     Dosage: 750 MG, BID
  6. MAGNESIUM (UNSPECIFIED) [Concomitant]
     Dosage: 500 MG, QD
  7. CYANOCOBALAMIN [Concomitant]
     Dosage: 500 MICROGRAM, QD
  8. CHOLECALCIFEROL [Concomitant]
     Dosage: 2000 IU, QD
  9. SYNTHROID [Concomitant]
     Indication: HYPOTHYROIDISM
     Dosage: 88 MICROGRAM, QAM
     Dates: start: 1990
  10. KLONOPIN [Concomitant]
     Indication: PANIC DISORDER
     Dosage: 0.5-1 MG, QID
     Dates: start: 1980
  11. NORPRAMIN (DESIPRAMINE HYDROCHLORIDE) [Concomitant]
     Indication: PANIC DISORDER
     Dosage: 50 MG, QD
     Dates: start: 1980
  12. VERAPAMIL [Concomitant]
     Indication: PANIC DISORDER
     Dosage: UNK
     Dates: start: 1980
  13. FORTEO [Concomitant]
     Indication: OSTEOPOROSIS
     Dosage: 20 MICROGRAM, QD
     Route: 058

REACTIONS (15)
  - Femur fracture [Unknown]
  - Intramedullary rod insertion [Unknown]
  - Loss of consciousness [Unknown]
  - Thyroid nodule removal [Unknown]
  - Lipoma excision [Unknown]
  - Generalised anxiety disorder [Unknown]
  - Spinal column stenosis [Unknown]
  - Osteoarthritis [Unknown]
  - Depression [Unknown]
  - Hypertension [Unknown]
  - Scoliosis [Unknown]
  - Thyroid neoplasm [Unknown]
  - Medical device pain [Not Recovered/Not Resolved]
  - Joint effusion [Unknown]
  - Arthralgia [Unknown]
